FAERS Safety Report 17958808 (Version 1)
Quarter: 2020Q2

REPORT INFORMATION
  Report Type: Spontaneous
  Country: NL (occurrence: NL)
  Receive Date: 20200629
  Receipt Date: 20200629
  Transmission Date: 20200714
  Serious: Yes (Other)
  Sender: FDA-Public Use
  Company Number: NL-MYLANLABS-2020M1059543

PATIENT
  Age: 33 Year
  Sex: Male

DRUGS (2)
  1. CLEMASTINE [Suspect]
     Active Substance: CLEMASTINE
     Indication: DRUG HYPERSENSITIVITY
     Dosage: 2 MILLIGRAM, THROUGH A VENFLON IN THE RIGHT ELBOW CREASE
     Route: 013
  2. MORPHINE [Suspect]
     Active Substance: MORPHINE
     Indication: PAIN
     Dosage: 2.5 MILLIGRAM, THROUGH A VENFLON IN THE RIGHT ELBOW CREASE
     Route: 013

REACTIONS (3)
  - Embolia cutis medicamentosa [Recovered/Resolved]
  - Incorrect route of product administration [Recovered/Resolved]
  - Drug hypersensitivity [Recovered/Resolved]
